FAERS Safety Report 8586727-9 (Version None)
Quarter: 2012Q3

REPORT INFORMATION
  Report Type: 
  Country: None (occurrence: None)
  Receive Date: 20120810
  Receipt Date: 20120802
  Transmission Date: 20120928
  Serious: Yes (Hospitalization)
  Sender: FDA-Public Use
  Company Number: GB-BAUSCH-2012BL003716

PATIENT
  Age: 81 Year
  Sex: Male
  Weight: 68 kg

DRUGS (2)
  1. RASAGILINE [Suspect]
     Indication: PARKINSON'S DISEASE
     Route: 048
     Dates: start: 20120404, end: 20120424
  2. PHENYLEPHRINE HYDROCHLORIDE [Suspect]
     Indication: INDUCTION OF ANAESTHESIA
     Dosage: 50 MG, ONCE
     Dates: start: 20120420, end: 20120420

REACTIONS (4)
  - INHIBITORY DRUG INTERACTION [None]
  - ANAESTHETIC COMPLICATION [None]
  - BLOOD PRESSURE INCREASED [None]
  - HYPERTENSIVE CRISIS [None]
